FAERS Safety Report 6944490-9 (Version None)
Quarter: 2010Q3

REPORT INFORMATION
  Report Type: 
  Country: None (occurrence: None)
  Receive Date: 20100827
  Receipt Date: 20100823
  Transmission Date: 20110219
  Serious: Yes (Hospitalization)
  Sender: FDA-Public Use
  Company Number: FR-PFIZER INC-2010105641

PATIENT
  Age: 53 Year
  Sex: Male

DRUGS (8)
  1. MEDROL [Suspect]
     Indication: MENINGOENCEPHALITIS HERPETIC
     Dosage: 16 MG, 1X/DAY
     Route: 048
     Dates: start: 20100720, end: 20100802
  2. TEGRETOL [Suspect]
     Dosage: 200 MG, 2X/DAY
     Route: 048
     Dates: start: 20100720, end: 20100805
  3. CEFIXIME [Suspect]
     Indication: MENINGOENCEPHALITIS HERPETIC
     Dosage: UNK
     Route: 048
     Dates: start: 20100720, end: 20100802
  4. ZOVIRAX [Suspect]
     Indication: MENINGOENCEPHALITIS HERPETIC
     Dosage: 800 MG, 4X/DAY
     Route: 048
     Dates: start: 20100726, end: 20100802
  5. LITHIUM [Concomitant]
     Dosage: UNK
  6. EFFEXOR [Concomitant]
     Dosage: UNK
  7. ALFUZOSIN [Concomitant]
     Dosage: UNK
  8. ACICLOVIR [Concomitant]
     Dosage: UNK
     Dates: start: 20100720

REACTIONS (1)
  - RASH MORBILLIFORM [None]
